FAERS Safety Report 15525642 (Version 1)
Quarter: 2018Q4

REPORT INFORMATION
  Report Type: Report from Study
  Country: US (occurrence: US)
  Receive Date: 20181018
  Receipt Date: 20181018
  Transmission Date: 20190205
  Serious: No
  Sender: FDA-Public Use
  Company Number: PHEH2018US043314

PATIENT
  Sex: Female

DRUGS (1)
  1. GILENYA [Suspect]
     Active Substance: FINGOLIMOD HYDROCHLORIDE
     Indication: MULTIPLE SCLEROSIS
     Dosage: 0.5 MG, QD
     Route: 065

REACTIONS (8)
  - Depressed mood [Unknown]
  - Temporomandibular joint syndrome [Unknown]
  - Myalgia [Unknown]
  - Stress [Unknown]
  - Influenza [Unknown]
  - Depression [Unknown]
  - Decreased interest [Unknown]
  - Headache [Unknown]
